FAERS Safety Report 13554740 (Version 1)
Quarter: 2017Q2

REPORT INFORMATION
  Report Type: Spontaneous
  Country: GB (occurrence: GB)
  Receive Date: 20170517
  Receipt Date: 20170517
  Transmission Date: 20170830
  Serious: Yes (Life-Threatening, Hospitalization, Other)
  Sender: FDA-Public Use
  Company Number: GB-TEVA-766971ACC

PATIENT
  Age: 63 Year
  Sex: Male
  Weight: 104.7 kg

DRUGS (6)
  1. CARBAMAZEPIN [Concomitant]
     Active Substance: CARBAMAZEPINE
  2. SODIUM VALPROATE [Concomitant]
     Active Substance: VALPROATE SODIUM
  3. COCODAMOL [Concomitant]
     Active Substance: ACETAMINOPHEN\CODEINE PHOSPHATE
  4. DIGOXIN. [Concomitant]
     Active Substance: DIGOXIN
  5. WARFARIN [Suspect]
     Active Substance: WARFARIN
     Indication: ATRIAL FIBRILLATION
     Dosage: 13 MILLIGRAM DAILY;
     Route: 048
     Dates: start: 19980721
  6. ATORVASTATIN [Concomitant]
     Active Substance: ATORVASTATIN

REACTIONS (4)
  - Haematuria [Not Recovered/Not Resolved]
  - International normalised ratio increased [Unknown]
  - Hypotension [Not Recovered/Not Resolved]
  - Ecchymosis [Not Recovered/Not Resolved]

NARRATIVE: CASE EVENT DATE: 20170419
